FAERS Safety Report 15622512 (Version 7)
Quarter: 2020Q1

REPORT INFORMATION
  Report Type: Spontaneous
  Country: US (occurrence: US)
  Receive Date: 20181115
  Receipt Date: 20200213
  Transmission Date: 20200409
  Serious: Yes (Hospitalization, Other)
  Sender: FDA-Public Use
  Company Number: US-BIOMARINAP-US-2018-120751

PATIENT
  Age: 40 Year
  Sex: Female

DRUGS (2)
  1. ALDURAZYME [Suspect]
     Active Substance: LARONIDASE
     Dosage: 43.5 MILLIGRAM, QW
     Route: 042
     Dates: start: 20190509
  2. ALDURAZYME [Suspect]
     Active Substance: LARONIDASE
     Indication: MUCOPOLYSACCHARIDOSIS I
     Dosage: UNK
     Route: 041
     Dates: start: 20181015

REACTIONS (12)
  - Aortic valve disease [Recovering/Resolving]
  - Ovarian haemorrhage [Recovering/Resolving]
  - Mitral valve disease [Recovering/Resolving]
  - Ascites [Recovering/Resolving]
  - Abdominal pain [Recovering/Resolving]
  - Anaphylactic reaction [Recovering/Resolving]
  - Catheterisation cardiac [Not Recovered/Not Resolved]
  - Gastrointestinal haemorrhage [Recovering/Resolving]
  - Eye haemorrhage [Unknown]
  - Ocular hyperaemia [Unknown]
  - Urticaria [Recovering/Resolving]
  - Haemoglobin decreased [Recovering/Resolving]

NARRATIVE: CASE EVENT DATE: 20181105
